FAERS Safety Report 10037119 (Version 1)
Quarter: 2014Q1

REPORT INFORMATION
  Report Type: Spontaneous
  Country: US (occurrence: None)
  Receive Date: 20140325
  Receipt Date: 20140325
  Transmission Date: 20141002
  Serious: Yes (Other)
  Sender: FDA-Public Use
  Company Number: None

PATIENT
  Age: 73 Year
  Sex: Female
  Weight: 58.97 kg

DRUGS (9)
  1. TAMIFLU 75 MG GENENTECH [Suspect]
     Indication: INFLUENZA
     Route: 048
     Dates: start: 20140222, end: 20140223
  2. VAGIFEM [Concomitant]
  3. MVI [Concomitant]
  4. B COMPLEX [Concomitant]
  5. COQ10 [Concomitant]
  6. OMEGA3 [Concomitant]
  7. VITAMIN D [Concomitant]
  8. MAGNESIUM [Concomitant]
  9. ASTRAGALUS [Concomitant]

REACTIONS (4)
  - Abdominal pain [None]
  - Diarrhoea [None]
  - Abdominal tenderness [None]
  - Liver tenderness [None]
